FAERS Safety Report 16336381 (Version 2)
Quarter: 2019Q2

REPORT INFORMATION
  Report Type: Spontaneous
  Country: CN (occurrence: CN)
  Receive Date: 20190521
  Receipt Date: 20190606
  Transmission Date: 20190711
  Serious: Yes (Hospitalization, Other)
  Sender: FDA-Public Use
  Company Number: CN-ACCORD-128098

PATIENT
  Age: 54 Year
  Sex: Female

DRUGS (3)
  1. BASILIXIMAB [Concomitant]
     Active Substance: BASILIXIMAB
     Indication: IMMUNOSUPPRESSION
  2. MYCOPHENOLIC ACID. [Concomitant]
     Active Substance: MYCOPHENOLIC ACID
     Indication: IMMUNOSUPPRESSION
     Dosage: LATER RECEIVE 500 MG TWICE DAILY
     Route: 048
  3. TACROLIMUS. [Suspect]
     Active Substance: TACROLIMUS
     Indication: IMMUNOSUPPRESSION
     Dosage: LATER RE-INTRODUCED AT 2 MG TWICE A DAY AND SUBSEQUENTLY WITHDRAWN
     Route: 048

REACTIONS (3)
  - Drug level increased [Recovering/Resolving]
  - Drug intolerance [Unknown]
  - Acute kidney injury [Recovered/Resolved]
